FAERS Safety Report 5953598-6 (Version None)
Quarter: 2008Q4

REPORT INFORMATION
  Report Type: 
  Country: None (occurrence: None)
  Receive Date: 20081114
  Receipt Date: 20081112
  Transmission Date: 20090506
  Serious: Yes (Death)
  Sender: FDA-Public Use
  Company Number: A0756586A

PATIENT
  Age: 85 Year
  Sex: Male
  Weight: 47 kg

DRUGS (1)
  1. SERETIDE [Suspect]
     Route: 065
     Dates: start: 20080301

REACTIONS (1)
  - CEREBROVASCULAR ACCIDENT [None]
